FAERS Safety Report 16932096 (Version 1)
Quarter: 2019Q4

REPORT INFORMATION
  Report Type: Spontaneous
  Country: US (occurrence: US)
  Receive Date: 20191017
  Receipt Date: 20191017
  Transmission Date: 20200122
  Serious: No
  Sender: FDA-Public Use
  Company Number: US-TEVA-2019-US-1123851

PATIENT
  Age: 9 Week

DRUGS (1)
  1. DIAZOXIDE [Suspect]
     Active Substance: DIAZOXIDE
     Dosage: 0.33ML/3 TIMES A DAY
     Route: 065

REACTIONS (2)
  - Fluid retention [Unknown]
  - Dyspnoea [Unknown]
